FAERS Safety Report 21834916 (Version 15)
Quarter: 2023Q4

REPORT INFORMATION
  Report Type: Spontaneous
  Country: CA (occurrence: CA)
  Receive Date: 20230109
  Receipt Date: 20231108
  Transmission Date: 20240109
  Serious: Yes (Other)
  Sender: FDA-Public Use
  Company Number: CA-PFIZER INC-202200426152

PATIENT
  Age: 51 Year
  Sex: Female
  Weight: 122 kg

DRUGS (30)
  1. ABRILADA [Suspect]
     Active Substance: ADALIMUMAB-AFZB
     Indication: Crohn^s disease
     Dosage: 40 MG, WEEKLY
     Route: 058
     Dates: start: 20220517
  2. ABRILADA [Suspect]
     Active Substance: ADALIMUMAB-AFZB
     Dosage: 40 MG, WEEKLY
     Route: 058
     Dates: start: 20220621
  3. ABRILADA [Suspect]
     Active Substance: ADALIMUMAB-AFZB
     Dosage: 40 MG, WEEKLY
     Route: 058
     Dates: start: 20220627
  4. ABRILADA [Suspect]
     Active Substance: ADALIMUMAB-AFZB
     Dosage: 40 MG, WEEKLY
     Route: 058
     Dates: start: 20220714
  5. ABRILADA [Suspect]
     Active Substance: ADALIMUMAB-AFZB
     Dosage: 40 MG, WEEKLY
     Route: 058
     Dates: start: 20220728
  6. ABRILADA [Suspect]
     Active Substance: ADALIMUMAB-AFZB
     Dosage: 40 MG, WEEKLY
     Route: 058
     Dates: start: 20220804
  7. ABRILADA [Suspect]
     Active Substance: ADALIMUMAB-AFZB
     Dosage: 40 MG, WEEKLY
     Route: 058
     Dates: start: 20220812
  8. ABRILADA [Suspect]
     Active Substance: ADALIMUMAB-AFZB
     Dosage: 40 MG, WEEKLY
     Route: 058
     Dates: start: 20220818
  9. ABRILADA [Suspect]
     Active Substance: ADALIMUMAB-AFZB
     Dosage: 40 MG, WEEKLY
     Route: 058
     Dates: start: 20220826
  10. ABRILADA [Suspect]
     Active Substance: ADALIMUMAB-AFZB
     Dosage: 40 MG, WEEKLY
     Route: 058
     Dates: start: 20220901
  11. ABRILADA [Suspect]
     Active Substance: ADALIMUMAB-AFZB
     Dosage: 40 MG, WEEKLY
     Route: 058
     Dates: start: 20220926
  12. ABRILADA [Suspect]
     Active Substance: ADALIMUMAB-AFZB
     Dosage: 40 MG, WEEKLY
     Route: 058
     Dates: start: 20221003
  13. ABRILADA [Suspect]
     Active Substance: ADALIMUMAB-AFZB
     Dosage: 40 MG, WEEKLY
     Route: 058
     Dates: start: 20221011
  14. ABRILADA [Suspect]
     Active Substance: ADALIMUMAB-AFZB
     Dosage: 40 MG, WEEKLY
     Route: 058
     Dates: start: 20221017
  15. ABRILADA [Suspect]
     Active Substance: ADALIMUMAB-AFZB
     Dosage: 40 MG, WEEKLY
     Route: 058
     Dates: start: 20221024
  16. ABRILADA [Suspect]
     Active Substance: ADALIMUMAB-AFZB
     Dosage: 40 MG, WEEKLY
     Route: 058
     Dates: start: 20221101
  17. ABRILADA [Suspect]
     Active Substance: ADALIMUMAB-AFZB
     Dosage: 40 MG, WEEKLY
     Route: 058
     Dates: start: 20221107
  18. ABRILADA [Suspect]
     Active Substance: ADALIMUMAB-AFZB
     Dosage: 40 MG, WEEKLY
     Route: 058
     Dates: start: 20221107
  19. ABRILADA [Suspect]
     Active Substance: ADALIMUMAB-AFZB
     Dosage: 40 MG, WEEKLY
     Route: 058
     Dates: start: 20221114
  20. ABRILADA [Suspect]
     Active Substance: ADALIMUMAB-AFZB
     Dosage: 40 MG, WEEKLY
     Route: 058
     Dates: start: 20221220
  21. ABRILADA [Suspect]
     Active Substance: ADALIMUMAB-AFZB
     Dosage: 40 MG, WEEKLY
     Route: 058
     Dates: start: 20230117
  22. ABRILADA [Suspect]
     Active Substance: ADALIMUMAB-AFZB
     Dosage: 40 MG, WEEKLY
     Route: 058
     Dates: start: 20230123
  23. ABRILADA [Suspect]
     Active Substance: ADALIMUMAB-AFZB
     Dosage: 40 MG, WEEKLY
     Route: 058
     Dates: start: 20230210
  24. ABRILADA [Suspect]
     Active Substance: ADALIMUMAB-AFZB
     Dosage: 40 MG, WEEKLY
     Route: 058
     Dates: start: 20230224
  25. CORTISONE [Concomitant]
     Active Substance: CORTISONE
     Dosage: UNK
  26. PREGABALIN [Concomitant]
     Active Substance: PREGABALIN
     Dosage: 125 MG
  27. PREGABALIN [Concomitant]
     Active Substance: PREGABALIN
     Dosage: 75 MG
  28. PREGABALIN [Concomitant]
     Active Substance: PREGABALIN
     Dosage: 125 MG
  29. PREGABALIN [Concomitant]
     Active Substance: PREGABALIN
     Dosage: 1 DF, 1X/DAY, DOSAGE INFORMATION NOT AVAILABLE
     Route: 065
  30. CHOLECALCIFEROL [Concomitant]
     Active Substance: CHOLECALCIFEROL
     Dosage: 1 DF, DOSAGE INFORMATION NOT AVAILABLE
     Route: 065

REACTIONS (21)
  - Condition aggravated [Recovered/Resolved]
  - Hypertension [Unknown]
  - Rectal haemorrhage [Not Recovered/Not Resolved]
  - Cellulitis [Recovering/Resolving]
  - Bite [Unknown]
  - Anxiety [Not Recovered/Not Resolved]
  - Contusion [Not Recovered/Not Resolved]
  - Hypertension [Not Recovered/Not Resolved]
  - Malaise [Not Recovered/Not Resolved]
  - Fatigue [Not Recovered/Not Resolved]
  - Nervousness [Unknown]
  - Injection site bruising [Not Recovered/Not Resolved]
  - Balance disorder [Unknown]
  - Injection site pain [Not Recovered/Not Resolved]
  - Illness [Not Recovered/Not Resolved]
  - Vomiting [Not Recovered/Not Resolved]
  - Depressed mood [Unknown]
  - Drug ineffective [Unknown]
  - Off label use [Unknown]
  - Product dose omission issue [Unknown]
  - Inappropriate schedule of product administration [Unknown]

NARRATIVE: CASE EVENT DATE: 20220101
